FAERS Safety Report 14908826 (Version 2)
Quarter: 2018Q2

REPORT INFORMATION
  Report Type: Spontaneous
  Country: FR (occurrence: FR)
  Receive Date: 20180517
  Receipt Date: 20180629
  Transmission Date: 20180711
  Serious: Yes (Other)
  Sender: FDA-Public Use
  Company Number: FR-PFIZER INC-2018196101

PATIENT
  Sex: Male

DRUGS (5)
  1. FLANID [Concomitant]
     Active Substance: TIAPROFENIC ACID
     Dosage: UNK
  2. SERTRALINE [Suspect]
     Active Substance: SERTRALINE HYDROCHLORIDE
     Dosage: UNK
  3. SPIRAMYCINE [Concomitant]
     Active Substance: SPIRAMYCIN
     Dosage: UNK
  4. ZOLOFT [Suspect]
     Active Substance: SERTRALINE HYDROCHLORIDE
     Dosage: 100 MG, QD
  5. SERTRALINE [Suspect]
     Active Substance: SERTRALINE HYDROCHLORIDE
     Dosage: 100 MG, QD

REACTIONS (5)
  - Otitis media [Unknown]
  - Upper respiratory tract infection [Unknown]
  - Tonsillar inflammation [Unknown]
  - Increased viscosity of upper respiratory secretion [Unknown]
  - Tooth abscess [Unknown]
